FAERS Safety Report 10945671 (Version 3)
Quarter: 2015Q2

REPORT INFORMATION
  Report Type: Spontaneous
  Country: US (occurrence: US)
  Receive Date: 20150323
  Receipt Date: 20150522
  Transmission Date: 20150821
  Serious: Yes (Life-Threatening, Hospitalization, Other)
  Sender: FDA-Public Use
  Company Number: US-BAYER-2015-038933

PATIENT
  Age: 26 Year
  Sex: Female
  Weight: 82 kg

DRUGS (2)
  1. MIRENA [Suspect]
     Active Substance: LEVONORGESTREL
     Indication: CONTRACEPTION
     Dosage: 20 MCG/24HR, CONT
     Route: 015
     Dates: start: 20110816, end: 20130411
  2. VENTOLIN [Concomitant]
     Active Substance: ALBUTEROL SULFATE
     Indication: ASTHMA
     Dosage: UNK
     Dates: start: 2001

REACTIONS (15)
  - Pregnancy with contraceptive device [None]
  - Abortion spontaneous [None]
  - Abdominal pain [None]
  - Pelvic pain [None]
  - Device issue [None]
  - Fatigue [None]
  - Malaise [None]
  - Uterine perforation [None]
  - Injury [None]
  - Infection [None]
  - Drug ineffective [None]
  - Device dislocation [None]
  - Pain [None]
  - General physical health deterioration [None]
  - Off label use of device [None]

NARRATIVE: CASE EVENT DATE: 201108
